FAERS Safety Report 21918739 (Version 1)
Quarter: 2023Q1

REPORT INFORMATION
  Report Type: Spontaneous
  Country: US (occurrence: US)
  Receive Date: 20230127
  Receipt Date: 20230127
  Transmission Date: 20230418
  Serious: No
  Sender: FDA-Public Use
  Company Number: US-BRISTOL-MYERS SQUIBB COMPANY-2023-012837

PATIENT
  Age: 56 Year
  Sex: Female
  Weight: 95.7 kg

DRUGS (5)
  1. REVLIMID [Suspect]
     Active Substance: LENALIDOMIDE
     Indication: Plasma cell myeloma
     Dosage: 14 DAYS ON 7 DAYS OFF
     Route: 048
     Dates: start: 20150414, end: 20151202
  2. VELCADE [Concomitant]
     Active Substance: BORTEZOMIB
     Indication: Plasma cell myeloma
     Dosage: DOSE OF 1.3 MG/M2 2WEEKLY DAY 1 AND 4 Q 7 DAYS,1 WK OFFQ 14 DAY
     Route: 058
     Dates: start: 20150414, end: 20150807
  3. DECADRON [Concomitant]
     Active Substance: DEXAMETHASONE
     Indication: Plasma cell myeloma
     Dosage: 20 MG ( ON DAY 1,4,8,11)  WEEKLY VIA ORAL
     Route: 048
     Dates: start: 20150414, end: 20151202
  4. CARFILZOMIB [Concomitant]
     Active Substance: CARFILZOMIB
     Indication: Plasma cell myeloma
     Dosage: ( DAYS 1,2,8,9,15,16 Q28 DAYS) VIA IV ROUTE AND STOPPED DUE TO DOSE ESCALATION
     Dates: start: 20150916, end: 20151002
  5. CARFILZOMIB [Concomitant]
     Active Substance: CARFILZOMIB
     Dosage: ( DAYS 1,2,8,9,15,16 Q28 DAYS) VIA IV ROUTE AND STOPPED DUE TO COMPLETED COURSE
     Dates: start: 20151015, end: 20151202

REACTIONS (1)
  - Off label use [Unknown]
